FAERS Safety Report 11613674 (Version 1)
Quarter: 2015Q4

REPORT INFORMATION
  Report Type: Report from Study
  Country: IT (occurrence: IT)
  Receive Date: 20151008
  Receipt Date: 20151008
  Transmission Date: 20160304
  Serious: Yes (Other)
  Sender: FDA-Public Use
  Company Number: IT-PFIZER INC-2015309662

PATIENT
  Age: 60 Year
  Sex: Male

DRUGS (11)
  1. CARVEDILOL. [Suspect]
     Active Substance: CARVEDILOL
     Dosage: UNK
  2. ALDACTONE [Suspect]
     Active Substance: SPIRONOLACTONE
     Dosage: UNK
  3. VIEKIRAX [Suspect]
     Active Substance: OMBITASVIR\PARITAPREVIR\RITONAVIR
     Dosage: UNK
  4. DASABUVIR [Suspect]
     Active Substance: DASABUVIR
     Dosage: UNK
  5. EPREX [Suspect]
     Active Substance: ERYTHROPOIETIN
     Dosage: UNK
  6. DELTACORTENE [Suspect]
     Active Substance: PREDNISONE
     Dosage: UNK
  7. DIURESIX [Suspect]
     Active Substance: TORSEMIDE
     Dosage: UNK
  8. RIBAVIRIN. [Suspect]
     Active Substance: RIBAVIRIN
     Dosage: UNK
  9. INSULIN HUMAN [Suspect]
     Active Substance: INSULIN HUMAN
     Dosage: UNK
  10. NIFEDICOR [Suspect]
     Active Substance: NIFEDIPINE
     Dosage: UNK
  11. RAMIPRIL. [Suspect]
     Active Substance: RAMIPRIL
     Dosage: UNK

REACTIONS (5)
  - Muscular weakness [Unknown]
  - Anaemia [Unknown]
  - Decreased appetite [Unknown]
  - Irritability [Unknown]
  - Nausea [Unknown]

NARRATIVE: CASE EVENT DATE: 20150112
